FAERS Safety Report 5297482-2 (Version None)
Quarter: 2007Q2

REPORT INFORMATION
  Report Type: 
  Country: None (occurrence: None)
  Receive Date: 20070409
  Receipt Date: 20070329
  Transmission Date: 20071010
  Serious: Yes (Hospitalization)
  Sender: FDA-Public Use
  Company Number: 2006SP008991

PATIENT
  Age: 82 Year
  Sex: Male
  Weight: 44 kg

DRUGS (2)
  1. TEMODAL [Suspect]
     Indication: GLIOBLASTOMA MULTIFORME
     Dosage: 220 MG;QD;PO; 280 MG;QD;PO
     Route: 048
     Dates: start: 20061023, end: 20061027
  2. TEMODAL [Suspect]
     Indication: GLIOBLASTOMA MULTIFORME
     Dosage: 220 MG;QD;PO; 280 MG;QD;PO
     Route: 048
     Dates: start: 20061120, end: 20061124

REACTIONS (1)
  - PSEUDOMONAS INFECTION [None]
